FAERS Safety Report 19831924 (Version 1)
Quarter: 2021Q3

REPORT INFORMATION
  Report Type: Spontaneous
  Country: GB (occurrence: GB)
  Receive Date: 20210915
  Receipt Date: 20210915
  Transmission Date: 20211014
  Serious: Yes (Life-Threatening, Hospitalization)
  Sender: FDA-Public Use
  Company Number: GB-TEVA-2021-GB-1951634

PATIENT
  Age: 64 Year
  Sex: Male

DRUGS (12)
  1. SPIRONOLACTONE. [Suspect]
     Active Substance: SPIRONOLACTONE
     Indication: HYPERALDOSTERONISM
     Dosage: 50 MILLIGRAM DAILY;
     Dates: start: 201307, end: 202106
  2. DIGOXIN. [Suspect]
     Active Substance: DIGOXIN
     Indication: ATRIAL FIBRILLATION
     Dosage: 125 MICROGRAMS
     Route: 048
     Dates: start: 201908
  3. ALLOPURINOL. [Concomitant]
     Active Substance: ALLOPURINOL
  4. PERINDOPRIL ERBUMINE. [Concomitant]
     Active Substance: PERINDOPRIL ERBUMINE
  5. COLCHICINE. [Concomitant]
     Active Substance: COLCHICINE
  6. FUROSEMIDE. [Suspect]
     Active Substance: FUROSEMIDE
     Indication: CARDIAC FAILURE CHRONIC
     Dosage: 40 MILLIGRAM DAILY;
     Route: 048
     Dates: start: 20191001
  7. APIXABAN [Concomitant]
     Active Substance: APIXABAN
  8. BISOPROLOL [Concomitant]
     Active Substance: BISOPROLOL
  9. SANDO?K [Concomitant]
  10. INDAPAMIDE. [Suspect]
     Active Substance: INDAPAMIDE
     Indication: CARDIAC FAILURE CHRONIC
     Dosage: 2.5 MILLIGRAM DAILY;
     Route: 048
     Dates: start: 202104
  11. OMEPRAZOLE. [Concomitant]
     Active Substance: OMEPRAZOLE
  12. COCODAMOL [Concomitant]
     Active Substance: ACETAMINOPHEN\CODEINE PHOSPHATE

REACTIONS (5)
  - Cardiac arrest [Not Recovered/Not Resolved]
  - Product prescribing issue [Unknown]
  - Bradycardia [Unknown]
  - Hypokalaemia [Not Recovered/Not Resolved]
  - Toxicity to various agents [Not Recovered/Not Resolved]

NARRATIVE: CASE EVENT DATE: 202107
